FAERS Safety Report 4313494-7 (Version None)
Quarter: 2004Q1

REPORT INFORMATION
  Report Type: 
  Country: None (occurrence: None)
  Receive Date: 20040304
  Receipt Date: 20040216
  Transmission Date: 20041129
  Serious: Yes (Hospitalization, Other)
  Sender: FDA-Public Use
  Company Number: USA040157375

PATIENT
  Age: 58 Year
  Sex: Female

DRUGS (6)
  1. FORTEO [Suspect]
     Indication: OSTEOPOROSIS
     Dates: start: 20031201
  2. DARVOCET-N 100 [Concomitant]
  3. SOMA [Concomitant]
  4. WELLBUTRIN [Concomitant]
  5. COUMADIN [Concomitant]
  6. ATIVAN [Concomitant]

REACTIONS (5)
  - PANIC REACTION [None]
  - PHARMACEUTICAL PRODUCT COMPLAINT [None]
  - PNEUMONIA [None]
  - SPINAL OPERATION [None]
  - TREATMENT NONCOMPLIANCE [None]
